FAERS Safety Report 6153401-8 (Version None)
Quarter: 2009Q2

REPORT INFORMATION
  Report Type: 
  Country: None (occurrence: None)
  Receive Date: 20090413
  Receipt Date: 20090403
  Transmission Date: 20091009
  Serious: Yes (Hospitalization)
  Sender: FDA-Public Use
  Company Number: US-CELGENEUS-163-21880-08060791

PATIENT
  Sex: Male

DRUGS (7)
  1. REVLIMID [Suspect]
     Route: 048
     Dates: start: 20080429, end: 20080517
  2. REVLIMID [Suspect]
     Route: 048
     Dates: start: 20080425, end: 20080427
  3. PREDNISONE TAB [Concomitant]
     Indication: DRUG USE FOR UNKNOWN INDICATION
     Route: 065
  4. ALLOPURINOL [Concomitant]
     Indication: DRUG USE FOR UNKNOWN INDICATION
     Route: 065
  5. RANITIDINE [Concomitant]
     Indication: DRUG USE FOR UNKNOWN INDICATION
     Route: 065
  6. OMEPRAZOLE [Concomitant]
     Indication: DRUG USE FOR UNKNOWN INDICATION
     Route: 065
  7. AMBIEN [Concomitant]
     Indication: DRUG USE FOR UNKNOWN INDICATION
     Route: 065

REACTIONS (6)
  - ARTHRALGIA [None]
  - HYPOTENSION [None]
  - MYALGIA [None]
  - PAIN [None]
  - PYREXIA [None]
  - TUMOUR FLARE [None]
